FAERS Safety Report 9210354 (Version 1)
Quarter: 2013Q2

REPORT INFORMATION
  Report Type: Spontaneous
  Country: US (occurrence: US)
  Receive Date: 20130404
  Receipt Date: 20130404
  Transmission Date: 20140414
  Serious: Yes (Hospitalization)
  Sender: FDA-Public Use
  Company Number: PHEH2013US007597

PATIENT
  Sex: Female

DRUGS (4)
  1. TASIGNA [Suspect]
     Dosage: 400 MG, BID
     Route: 048
  2. GABAPENTIN [Concomitant]
  3. BUMEX [Concomitant]
  4. VITAMIN C [Concomitant]

REACTIONS (6)
  - Poor peripheral circulation [Unknown]
  - Post procedural complication [Unknown]
  - Hypoaesthesia [Unknown]
  - Skin discolouration [Unknown]
  - Anaemia [Unknown]
  - Pain [Unknown]
